FAERS Safety Report 21299063 (Version 19)
Quarter: 2025Q4

REPORT INFORMATION
  Report Type: Spontaneous
  Country: US (occurrence: US)
  Receive Date: 20220906
  Receipt Date: 20251008
  Transmission Date: 20260118
  Serious: No
  Sender: PFIZER
  Company Number: US-PFIZER INC-202201114711

PATIENT
  Age: 74 Year
  Sex: Male

DRUGS (4)
  1. ZARONTIN [Suspect]
     Active Substance: ETHOSUXIMIDE
     Indication: Seizure
     Dosage: 750 MG, 3 CAPSULES
  2. ZARONTIN [Suspect]
     Active Substance: ETHOSUXIMIDE
     Dosage: 250 MG, 1X/DAY
  3. ZARONTIN [Suspect]
     Active Substance: ETHOSUXIMIDE
     Dosage: UNK UNK, DAILY (HALF A CAPSULE)
  4. ZARONTIN [Suspect]
     Active Substance: ETHOSUXIMIDE
     Dosage: UNK

REACTIONS (8)
  - Headache [Unknown]
  - Migraine [Unknown]
  - Fatigue [Unknown]
  - Blood glucose decreased [Unknown]
  - Cardiac disorder [Unknown]
  - Off label use [Unknown]
  - Product prescribing error [Unknown]
  - Wrong technique in product usage process [Unknown]

NARRATIVE: CASE EVENT DATE: 20170101
